FAERS Safety Report 18473286 (Version 2)
Quarter: 2020Q4

REPORT INFORMATION
  Report Type: Spontaneous
  Country: CH (occurrence: CH)
  Receive Date: 20201106
  Receipt Date: 20201201
  Transmission Date: 20210114
  Serious: Yes (Other)
  Sender: FDA-Public Use
  Company Number: CH-BAYER-2020-240227

PATIENT
  Age: 40 Year
  Sex: Female

DRUGS (1)
  1. MIRENA [Suspect]
     Active Substance: LEVONORGESTREL
     Dosage: 20 ?G PER DAY, CONTINUOUSLY
     Route: 015
     Dates: start: 201009, end: 201509

REACTIONS (1)
  - Breast cancer [Recovered/Resolved]

NARRATIVE: CASE EVENT DATE: 2017
